FAERS Safety Report 17360728 (Version 1)
Quarter: 2020Q1

REPORT INFORMATION
  Report Type: Spontaneous
  Country: US (occurrence: US)
  Receive Date: 20200131
  Receipt Date: 20200131
  Transmission Date: 20200409
  Serious: Yes (Hospitalization)
  Sender: FDA-Public Use
  Company Number: None

PATIENT
  Sex: Female

DRUGS (19)
  1. ESTRADIOL. [Concomitant]
     Active Substance: ESTRADIOL
  2. FOLIC ACID. [Concomitant]
     Active Substance: FOLIC ACID
  3. METOPROLOL. [Concomitant]
     Active Substance: METOPROLOL
  4. DULOXETINE. [Concomitant]
     Active Substance: DULOXETINE
  5. GABAPENTIN. [Concomitant]
     Active Substance: GABAPENTIN
  6. IRBESARTAN. [Concomitant]
     Active Substance: IRBESARTAN
  7. LEUKERAN [Suspect]
     Active Substance: CHLORAMBUCIL
     Indication: IRIDOCYCLITIS
     Route: 048
     Dates: start: 20191029
  8. DILT XR [Concomitant]
  9. INDOMETHACIN. [Concomitant]
     Active Substance: INDOMETHACIN
  10. OMEPRAZOLE. [Concomitant]
     Active Substance: OMEPRAZOLE
  11. SMZ/TMP [Concomitant]
     Active Substance: SULFAMETHOXAZOLE\TRIMETHOPRIM
  12. ALENDRONATE [Concomitant]
     Active Substance: ALENDRONATE SODIUM
  13. AZATHIOPRINE. [Concomitant]
     Active Substance: AZATHIOPRINE
  14. DILTIAZEM. [Concomitant]
     Active Substance: DILTIAZEM
  15. BUSPIRONE [Concomitant]
     Active Substance: BUSPIRONE HYDROCHLORIDE
  16. CELECOXIB. [Concomitant]
     Active Substance: CELECOXIB
  17. ATROPINE. [Concomitant]
     Active Substance: ATROPINE
  18. PREDNISONE. [Concomitant]
     Active Substance: PREDNISONE
  19. TOPIRAMATE. [Concomitant]
     Active Substance: TOPIRAMATE

REACTIONS (1)
  - Hospitalisation [None]
